FAERS Safety Report 22071955 (Version 1)
Quarter: 2023Q1

REPORT INFORMATION
  Report Type: Spontaneous
  Country: IT (occurrence: IT)
  Receive Date: 20230308
  Receipt Date: 20230308
  Transmission Date: 20230418
  Serious: Yes (Life-Threatening, Hospitalization, Other)
  Sender: FDA-Public Use
  Company Number: IT-STERISCIENCE B.V.-2023-ST-000981

PATIENT
  Sex: Male

DRUGS (7)
  1. MIDAZOLAM [Suspect]
     Active Substance: MIDAZOLAM
     Indication: Seizure
     Dosage: 0.06 MILLIGRAM/KILOGRAM, QH (CONTINUOUS INFUSION)
     Route: 042
  2. MIDAZOLAM [Suspect]
     Active Substance: MIDAZOLAM
     Dosage: 0.24 MILLIGRAM/KILOGRAM, QH (TITRATED UP TO 0.24 MG/(KG.H)])
     Route: 065
  3. FENTANYL [Suspect]
     Active Substance: FENTANYL
     Indication: Therapeutic hypothermia
     Dosage: CONTINUOUS INFUSION WAS STARTED [1 MICROG/(KG.H), TITRATED UP TO 3 MICROG/(KG.H)]
     Route: 042
  4. LEVETIRACETAM [Suspect]
     Active Substance: LEVETIRACETAM
     Indication: Seizure
     Dosage: 20 MILLIGRAM/KILOGRAM (LOAD DOSE)
     Route: 065
  5. LEVETIRACETAM [Suspect]
     Active Substance: LEVETIRACETAM
     Dosage: 60 MILLIGRAM/KILOGRAM, QD (MAINTENANCE DOSE)
     Route: 065
  6. PHENOBARBITAL [Suspect]
     Active Substance: PHENOBARBITAL
     Indication: Seizure
     Dosage: 20 MILLIGRAM/KILOGRAM (LOAD DOSE)
     Route: 065
  7. PHENOBARBITAL [Suspect]
     Active Substance: PHENOBARBITAL
     Dosage: 5 MILLIGRAM/KILOGRAM, QD (MAINTENANCE DOSE)
     Route: 065

REACTIONS (3)
  - Coma neonatal [Recovered/Resolved]
  - Misleading laboratory test result [Recovered/Resolved]
  - Off label use [Unknown]
